FAERS Safety Report 14196945 (Version 1)
Quarter: 2017Q4

REPORT INFORMATION
  Report Type: Spontaneous
  Country: US (occurrence: US)
  Receive Date: 20171116
  Receipt Date: 20171116
  Transmission Date: 20180321
  Serious: No
  Sender: FDA-Public Use
  Company Number: US-BAYER-2017-215707

PATIENT
  Age: 65 Year
  Sex: Male

DRUGS (3)
  1. ALEVE [Suspect]
     Active Substance: NAPROXEN SODIUM
     Indication: PAIN
     Dosage: 2 DF, UNK
     Dates: start: 20171016
  2. VICODIN [Concomitant]
     Active Substance: ACETAMINOPHEN\HYDROCODONE BITARTRATE
  3. PREVNAR [Suspect]
     Active Substance: PNEUMOCOCCAL 7-VALENT CONJUGATE VACCINE (DIPHTHERIA CRM197 PROTEIN)
     Dosage: UNK
     Dates: start: 20171016

REACTIONS (12)
  - Drug effect incomplete [Recovering/Resolving]
  - Joint range of motion decreased [Recovering/Resolving]
  - Pain in extremity [None]
  - Musculoskeletal pain [Recovering/Resolving]
  - Insomnia [None]
  - Muscular weakness [Recovering/Resolving]
  - Ligament rupture [None]
  - Pain [None]
  - Musculoskeletal disorder [None]
  - Musculoskeletal stiffness [Recovering/Resolving]
  - Limb discomfort [Not Recovered/Not Resolved]
  - Injection site pain [Not Recovered/Not Resolved]

NARRATIVE: CASE EVENT DATE: 20171016
